FAERS Safety Report 15580719 (Version 1)
Quarter: 2018Q4

REPORT INFORMATION
  Report Type: Spontaneous
  Country: US (occurrence: US)
  Receive Date: 20181103
  Receipt Date: 20181103
  Transmission Date: 20190205
  Serious: Yes (Life-Threatening, Hospitalization)
  Sender: FDA-Public Use
  Company Number: None

PATIENT
  Age: 45 Year
  Sex: Female
  Weight: 60.75 kg

DRUGS (5)
  1. FISH OIL [Concomitant]
     Active Substance: FISH OIL
  2. MACROBID [Suspect]
     Active Substance: NITROFURANTOIN\NITROFURANTOIN MONOHYDRATE
     Indication: URINARY TRACT INFECTION
     Dosage: ?          QUANTITY:1 CAPSULE(S);?
     Route: 048
     Dates: start: 20180702, end: 20180703
  3. VITAMIN C [Concomitant]
     Active Substance: ASCORBIC ACID
  4. MTV [Concomitant]
  5. VITAMIN D [Concomitant]
     Active Substance: CHOLECALCIFEROL

REACTIONS (13)
  - Dyspnoea [None]
  - Pneumonia [None]
  - Heart rate increased [None]
  - Cough [None]
  - Chills [None]
  - Blood urine present [None]
  - Pleural effusion [None]
  - Acute respiratory distress syndrome [None]
  - White blood cell count increased [None]
  - Asthenia [None]
  - Pyrexia [None]
  - Chest discomfort [None]
  - Pain [None]

NARRATIVE: CASE EVENT DATE: 20180702
